FAERS Safety Report 25825580 (Version 1)
Quarter: 2025Q3

REPORT INFORMATION
  Report Type: Spontaneous
  Country: US (occurrence: US)
  Receive Date: 20250919
  Receipt Date: 20250919
  Transmission Date: 20251021
  Serious: Yes (Other)
  Sender: SANDOZ
  Company Number: US-SANDOZ-SDZ2025US067020

PATIENT
  Sex: Male

DRUGS (5)
  1. CANAKINUMAB [Suspect]
     Active Substance: CANAKINUMAB
     Indication: Lung disorder
     Route: 065
  2. METHOTREXATE [Suspect]
     Active Substance: METHOTREXATE
     Indication: Lung disorder
     Route: 065
  3. METHOTREXATE [Suspect]
     Active Substance: METHOTREXATE
     Indication: Juvenile idiopathic arthritis
  4. PREDNISONE [Suspect]
     Active Substance: PREDNISONE
     Indication: Lung disorder
     Route: 065
  5. TOFACITINIB [Suspect]
     Active Substance: TOFACITINIB
     Indication: Lung disorder
     Route: 065

REACTIONS (3)
  - Lung disorder [Unknown]
  - Condition aggravated [Unknown]
  - Drug ineffective [Unknown]
